FAERS Safety Report 20980668 (Version 1)
Quarter: 2022Q2

REPORT INFORMATION
  Report Type: Report from Study
  Country: BR (occurrence: BR)
  Receive Date: 20220620
  Receipt Date: 20220620
  Transmission Date: 20220721
  Serious: Yes (Other)
  Sender: FDA-Public Use
  Company Number: BR-JNJFOC-20220632448

PATIENT
  Sex: Female
  Weight: 70 kg

DRUGS (1)
  1. INFLIXIMAB [Suspect]
     Active Substance: INFLIXIMAB
     Indication: Rheumatoid arthritis
     Dosage: 3 VAILS
     Route: 041
     Dates: start: 20211008

REACTIONS (3)
  - Rheumatoid arthritis [Not Recovered/Not Resolved]
  - Dengue fever [Unknown]
  - Drug ineffective [Unknown]
